FAERS Safety Report 11698674 (Version 1)
Quarter: 2015Q4

REPORT INFORMATION
  Report Type: Spontaneous
  Country: US (occurrence: US)
  Receive Date: 20151104
  Receipt Date: 20151104
  Transmission Date: 20160304
  Serious: No
  Sender: FDA-Public Use
  Company Number: US-ELI_LILLY_AND_COMPANY-US201012000262

PATIENT
  Age: 70 Year
  Sex: Female
  Weight: 45.26 kg

DRUGS (6)
  1. VITAMINS [Concomitant]
     Active Substance: VITAMINS
     Dosage: UNK, DAILY (1/D)
  2. FISH OIL [Concomitant]
     Active Substance: FISH OIL
     Dosage: 1000 MG, DAILY (1/D)
  3. BACTRIM [Concomitant]
     Active Substance: SULFAMETHOXAZOLE\TRIMETHOPRIM
  4. HORSECHESTNUT 2000 COMPLEX [Concomitant]
     Indication: VEIN DISORDER
  5. FORTEO [Suspect]
     Active Substance: TERIPARATIDE
     Indication: OSTEOPOROSIS
     Dosage: 20 UG, DAILY (1/D)
     Route: 058
     Dates: start: 20100511
  6. VITAMIN D [Concomitant]
     Active Substance: CHOLECALCIFEROL
     Dosage: 1000 U, DAILY (1/D)

REACTIONS (15)
  - Creatinine renal clearance decreased [Unknown]
  - Headache [Unknown]
  - Anaemia [Recovered/Resolved]
  - Palpitations [Recovered/Resolved]
  - Urinary incontinence [Unknown]
  - Haemoglobin decreased [Unknown]
  - Gastrointestinal infection [Recovered/Resolved]
  - Body temperature increased [Unknown]
  - Arthralgia [Unknown]
  - Blood calcium increased [Unknown]
  - Feeling cold [Unknown]
  - Blood creatinine increased [Unknown]
  - Red blood cell sedimentation rate increased [Unknown]
  - Blood urea increased [Unknown]
  - Haematocrit decreased [Unknown]

NARRATIVE: CASE EVENT DATE: 201009
